FAERS Safety Report 22347822 (Version 2)
Quarter: 2023Q2

REPORT INFORMATION
  Report Type: Spontaneous
  Country: US (occurrence: US)
  Receive Date: 20230522
  Receipt Date: 20230616
  Transmission Date: 20230722
  Serious: No
  Sender: FDA-Public Use
  Company Number: US-GLAXOSMITHKLINE-US2023AMR070876

PATIENT
  Sex: Female

DRUGS (2)
  1. ZEJULA [Suspect]
     Active Substance: NIRAPARIB
     Indication: Ovarian cancer
     Dosage: 300 MG, QD
     Dates: start: 20230420
  2. ZEJULA [Suspect]
     Active Substance: NIRAPARIB
     Dosage: 300 MG, QD
     Route: 048
     Dates: end: 202306

REACTIONS (13)
  - Blood glucose increased [Unknown]
  - Blood pressure increased [Unknown]
  - Sleep disorder [Unknown]
  - Blood disorder [Unknown]
  - Red blood cell abnormality [Unknown]
  - Dizziness [Unknown]
  - Fear-related avoidance of activities [Unknown]
  - Phobia of driving [Unknown]
  - Photophobia [Unknown]
  - Feeling abnormal [Unknown]
  - Blood glucose decreased [Unknown]
  - Blood pressure decreased [Unknown]
  - Constipation [Unknown]
